FAERS Safety Report 19080198 (Version 1)
Quarter: 2021Q1

REPORT INFORMATION
  Report Type: Spontaneous
  Country: US (occurrence: US)
  Receive Date: 20210331
  Receipt Date: 20210331
  Transmission Date: 20210420
  Serious: Yes (Other)
  Sender: FDA-Public Use
  Company Number: US-SA-2021SA098091

PATIENT
  Age: 36 Year
  Sex: Male

DRUGS (4)
  1. HEPARIN [Suspect]
     Active Substance: HEPARIN SODIUM
     Indication: THROMBOSIS PROPHYLAXIS
  2. HEPARIN [Suspect]
     Active Substance: HEPARIN SODIUM
     Indication: VISCERAL VENOUS THROMBOSIS
     Dosage: 5000 U, BID
     Route: 041
  3. ENOXAPARIN SODIUM. [Suspect]
     Active Substance: ENOXAPARIN SODIUM
     Indication: VISCERAL VENOUS THROMBOSIS
     Dosage: 30 MG, LOW DOSE
  4. ENOXAPARIN SODIUM. [Suspect]
     Active Substance: ENOXAPARIN SODIUM
     Indication: THROMBOSIS PROPHYLAXIS
     Dosage: 40 MG

REACTIONS (4)
  - Gastrointestinal haemorrhage [Unknown]
  - Pancreatic haemorrhage [Unknown]
  - Upper gastrointestinal haemorrhage [Unknown]
  - Acute kidney injury [Unknown]
